FAERS Safety Report 4730116-1 (Version None)
Quarter: 2005Q3

REPORT INFORMATION
  Report Type: 
  Country: None (occurrence: None)
  Receive Date: 20050728
  Receipt Date: 20050714
  Transmission Date: 20060218
  Serious: Yes (Death, Congenital Anomaly)
  Sender: FDA-Public Use
  Company Number: 2005S1000214

PATIENT
  Age: 0 Year
  Sex: Male
  Weight: 1.4 kg

DRUGS (2)
  1. ACITRETIN         (ACITRETIN) [Suspect]
     Indication: TRANSMISSION OF DRUG VIA SEMEN
     Dosage: TRPL
     Route: 064
     Dates: start: 20030101
  2. FENPROPOREX     (FENPROPOREX) [Suspect]
     Indication: MATERNAL DRUGS AFFECTING FOETUS
     Route: 064
     Dates: end: 20031201

REACTIONS (7)
  - CAESAREAN SECTION [None]
  - CONGENITAL ANOMALY [None]
  - DRUG EXPOSURE DURING PREGNANCY [None]
  - PREMATURE BABY [None]
  - RENAL FAILURE NEONATAL [None]
  - SOLITARY KIDNEY [None]
  - TRANSMISSION OF DRUG VIA SEMEN [None]
